FAERS Safety Report 10586940 (Version 1)
Quarter: 2014Q4

REPORT INFORMATION
  Report Type: Spontaneous
  Country: US (occurrence: None)
  Receive Date: 20141114
  Receipt Date: 20141114
  Transmission Date: 20150529
  Serious: No
  Sender: FDA-Public Use
  Company Number: None

PATIENT
  Age: 50 Year
  Sex: Female
  Weight: 54.43 kg

DRUGS (2)
  1. TRAMADOL 50 MG [Suspect]
     Active Substance: TRAMADOL
     Indication: BONE CONTUSION
     Dosage: 1 PILL
     Route: 048
     Dates: start: 20111227, end: 20111227
  2. TRAMADOL 50 MG [Suspect]
     Active Substance: TRAMADOL
     Indication: PAIN
     Dosage: 1 PILL
     Route: 048
     Dates: start: 20111227, end: 20111227

REACTIONS (3)
  - Sensory disturbance [None]
  - Paraesthesia [None]
  - Nausea [None]

NARRATIVE: CASE EVENT DATE: 20111227
